FAERS Safety Report 25803202 (Version 9)
Quarter: 2025Q4

REPORT INFORMATION
  Report Type: Report from Study
  Country: US (occurrence: None)
  Receive Date: 20250915
  Receipt Date: 20251224
  Transmission Date: 20260118
  Serious: Yes (Hospitalization, Disabling, Other)
  Sender: UCB
  Company Number: US-UCBSA-2025050215

PATIENT
  Age: 78 Year
  Weight: 97.1 kg

DRUGS (13)
  1. ZILUCOPLAN [Suspect]
     Active Substance: ZILUCOPLAN
     Indication: Myasthenia gravis
     Dosage: 32.4 MILLIGRAM, ONCE DAILY (QD)
  2. ZILUCOPLAN [Suspect]
     Active Substance: ZILUCOPLAN
     Dosage: 32.4 MILLIGRAM, ONCE DAILY (QD)
  3. ZILUCOPLAN [Suspect]
     Active Substance: ZILUCOPLAN
     Dosage: 32.4 MILLIGRAM, ONCE DAILY (QD)
  4. ZILUCOPLAN [Suspect]
     Active Substance: ZILUCOPLAN
     Dosage: 32.4 MILLIGRAM, ONCE DAILY (QD)
  5. ZILUCOPLAN [Suspect]
     Active Substance: ZILUCOPLAN
     Dosage: 32.4 MILLIGRAM, ONCE DAILY (QD)
  6. DOXYCYCLINE [Concomitant]
     Active Substance: DOXYCYCLINE
     Indication: Product used for unknown indication
     Dosage: UNK
  7. losartan, [Concomitant]
     Indication: Product used for unknown indication
     Dosage: UNK
  8. LASIX [Concomitant]
     Active Substance: FUROSEMIDE
     Indication: Product used for unknown indication
     Dosage: UNK
  9. protonix, [Concomitant]
     Indication: Product used for unknown indication
     Dosage: UNK
  10. PANTOPRAZOLE [Concomitant]
     Active Substance: PANTOPRAZOLE
     Indication: Product used for unknown indication
     Dosage: UNK
  11. Albuterol, [Concomitant]
     Indication: Product used for unknown indication
     Dosage: UNK
  12. Trellegy, [Concomitant]
     Indication: Product used for unknown indication
     Dosage: UNK
  13. Prednisone, [Concomitant]
     Indication: Product used for unknown indication
     Dosage: UNK

REACTIONS (10)
  - Myasthenia gravis [Not Recovered/Not Resolved]
  - Urinary tract infection [Recovering/Resolving]
  - Fungal infection [Recovered/Resolved]
  - Abdominal pain [Recovering/Resolving]
  - Illness [Recovering/Resolving]
  - Contusion [Not Recovered/Not Resolved]
  - Fatigue [Not Recovered/Not Resolved]
  - Pain [Recovering/Resolving]
  - Needle issue [Unknown]
  - Therapeutic response decreased [Unknown]
